FAERS Safety Report 7374493-4 (Version None)
Quarter: 2011Q1

REPORT INFORMATION
  Report Type: 
  Country: None (occurrence: None)
  Receive Date: 20110325
  Receipt Date: 20110117
  Transmission Date: 20110831
  Serious: No
  Sender: FDA-Public Use
  Company Number: US-MYLANLABS-2011S1001271

PATIENT
  Age: 56 Year
  Sex: Male
  Weight: 79.83 kg

DRUGS (10)
  1. CARVEDILOL [Concomitant]
     Indication: BLOOD PRESSURE INCREASED
     Route: 048
  2. AMLODIPINE [Concomitant]
     Indication: BLOOD PRESSURE INCREASED
     Route: 048
  3. FENTANYL-100 [Suspect]
     Indication: BACK PAIN
     Dosage: CHANGED Q 72 HOURS.
     Route: 062
     Dates: start: 20101201
  4. PLAVIX [Concomitant]
     Indication: ANTIPLATELET THERAPY
     Route: 048
  5. NITROGLYCERIN [Concomitant]
     Indication: CHEST PAIN
     Route: 060
  6. LASIX [Concomitant]
     Indication: SWELLING
     Route: 048
  7. LIPITOR [Concomitant]
     Indication: BLOOD CHOLESTEROL INCREASED
     Route: 048
  8. ENALAPRIL MALEATE [Concomitant]
     Indication: BLOOD PRESSURE INCREASED
     Route: 048
  9. IMDUR [Concomitant]
     Indication: BLOOD PRESSURE INCREASED
     Route: 048
  10. GEMFIBROZIL [Concomitant]
     Indication: BLOOD CHOLESTEROL INCREASED
     Route: 048

REACTIONS (2)
  - NAUSEA [None]
  - HANGOVER [None]
